FAERS Safety Report 14553717 (Version 1)
Quarter: 2018Q1

REPORT INFORMATION
  Report Type: Spontaneous
  Country: GB (occurrence: GB)
  Receive Date: 20180220
  Receipt Date: 20180220
  Transmission Date: 20180509
  Serious: Yes (Hospitalization)
  Sender: FDA-Public Use
  Company Number: GB-OTSUKA-2018_004104

PATIENT
  Sex: Male

DRUGS (1)
  1. JINARC [Suspect]
     Active Substance: TOLVAPTAN
     Indication: PRODUCT USED FOR UNKNOWN INDICATION
     Dosage: 90 MG, UNK (MORNING)
     Route: 065

REACTIONS (3)
  - Anxiety [Unknown]
  - Accident [Unknown]
  - Dehydration [Recovered/Resolved]
